FAERS Safety Report 14958222 (Version 1)
Quarter: 2018Q2

REPORT INFORMATION
  Report Type: Spontaneous
  Country: JP (occurrence: JP)
  Receive Date: 20180531
  Receipt Date: 20180531
  Transmission Date: 20180711
  Serious: Yes (Other)
  Sender: FDA-Public Use
  Company Number: JP-MYLANLABS-2018M1035629

PATIENT
  Age: 59 Year
  Sex: Male

DRUGS (1)
  1. IMATINIB [Suspect]
     Active Substance: IMATINIB
     Indication: CHRONIC MYELOID LEUKAEMIA
     Dosage: 300-400 MG DAILY
     Route: 065

REACTIONS (2)
  - Philadelphia chromosome negative [Recovering/Resolving]
  - Acute promyelocytic leukaemia [Recovering/Resolving]
